FAERS Safety Report 5467463-4 (Version None)
Quarter: 2007Q3

REPORT INFORMATION
  Report Type: 
  Country: None (occurrence: None)
  Receive Date: 20070925
  Receipt Date: 20070914
  Transmission Date: 20080115
  Serious: Yes (Death, Hospitalization)
  Sender: FDA-Public Use
  Company Number: US-GENENTECH-246189

PATIENT
  Sex: Male

DRUGS (14)
  1. BEVACIZUMAB [Suspect]
     Indication: COLORECTAL CANCER
     Dosage: 1385.5 MG, Q2W
     Route: 042
     Dates: start: 20070326, end: 20070709
  2. OXALIPLATIN [Suspect]
     Indication: COLORECTAL CANCER
     Dosage: 131.3 MG, Q2W
     Route: 042
     Dates: start: 20070326
  3. FLUOROURACIL [Suspect]
     Indication: COLORECTAL CANCER
     Dosage: 606 MG, SINGLE
     Route: 042
     Dates: start: 20070326, end: 20070711
  4. FLUOROURACIL [Suspect]
     Dosage: 3636 MG, Q2W
     Route: 042
     Dates: start: 20070326, end: 20070711
  5. FOLINIC ACID [Suspect]
     Indication: COLORECTAL CANCER
     Dosage: 800 MG, Q2W
     Route: 042
     Dates: start: 20070326
  6. COUMADIN [Concomitant]
     Indication: DRUG USE FOR UNKNOWN INDICATION
     Dates: start: 20070201
  7. COZAAR [Concomitant]
     Indication: DRUG USE FOR UNKNOWN INDICATION
     Dates: start: 19920101
  8. CARDIZEM [Concomitant]
     Indication: DRUG USE FOR UNKNOWN INDICATION
     Dates: start: 20061101
  9. PEPCID [Concomitant]
     Indication: DRUG USE FOR UNKNOWN INDICATION
     Dates: start: 20070201
  10. DIGITEK [Concomitant]
     Indication: DRUG USE FOR UNKNOWN INDICATION
     Dates: start: 20070201
  11. LIPITOR [Concomitant]
     Indication: DRUG USE FOR UNKNOWN INDICATION
     Dates: start: 19940101
  12. MULTI-VITAMIN [Concomitant]
     Indication: DRUG USE FOR UNKNOWN INDICATION
     Dates: start: 20070201
  13. NYSTATIN [Concomitant]
     Indication: DRUG USE FOR UNKNOWN INDICATION
     Dates: start: 20070720
  14. MEGACE [Concomitant]
     Indication: DRUG USE FOR UNKNOWN INDICATION
     Dates: start: 20070417

REACTIONS (1)
  - SEPSIS [None]
